FAERS Safety Report 22013077 (Version 1)
Quarter: 2023Q1

REPORT INFORMATION
  Report Type: Spontaneous
  Country: CA (occurrence: CA)
  Receive Date: 20230220
  Receipt Date: 20230220
  Transmission Date: 20230418
  Serious: Yes (Other)
  Sender: FDA-Public Use
  Company Number: CA-MYLANLABS-2023M1017565

PATIENT
  Age: 78 Year
  Sex: Male

DRUGS (10)
  1. TRASTUZUMAB [Suspect]
     Active Substance: TRASTUZUMAB
     Indication: Metastatic gastric cancer
     Dosage: UNK, 6 MG/KG AFTER A FIRST CYCLE AT 8 MG/KG EVERY 3 WEEKS
     Route: 065
  2. RALTITREXED [Suspect]
     Active Substance: RALTITREXED
     Indication: Metastatic gastric cancer
     Dosage: UNK, WAS DOSE REDUCED BY 30-40% FROM A STANDARD DOSE OF 3 MG/M2
     Route: 065
  3. CARBOPLATIN [Suspect]
     Active Substance: CARBOPLATIN
     Indication: Metastatic gastric cancer
     Dosage: UNK,4 AREA UNDER THE CURVE, OR AUC; WERE MODERATELY DOSE-REDUCED BY 20% EACH: 5 AUC FOR CARBOPLATIN
     Route: 065
  4. CARBOPLATIN [Suspect]
     Active Substance: CARBOPLATIN
     Dosage: UNK,WITH RALTITREXED; DOSE REDUCED BY 20-25% FROM A STANDARD DOSE OF 5 AUC
     Route: 065
  5. BISOPROLOL [Concomitant]
     Active Substance: BISOPROLOL
     Indication: Acute myocardial infarction
     Dosage: 5 MILLIGRAM, QD
     Route: 065
  6. PERINDOPRIL [Concomitant]
     Active Substance: PERINDOPRIL
     Indication: Product used for unknown indication
     Dosage: 4 MILLIGRAM, QD
     Route: 065
  7. ATORVASTATIN [Concomitant]
     Active Substance: ATORVASTATIN
     Indication: Product used for unknown indication
     Dosage: 40 MILLIGRAM, QD
     Route: 065
  8. ASPIRIN [Concomitant]
     Active Substance: ASPIRIN
     Indication: Acute myocardial infarction
     Dosage: 81 MILLIGRAM, QD
     Route: 065
  9. CLOPIDOGREL [Concomitant]
     Active Substance: CLOPIDOGREL BISULFATE
     Indication: Acute myocardial infarction
     Dosage: 75 MILLIGRAM, QD
     Route: 065
  10. FONDAPARINUX [Concomitant]
     Active Substance: FONDAPARINUX
     Indication: Acute myocardial infarction
     Dosage: UNK
     Route: 065

REACTIONS (3)
  - Myelosuppression [Unknown]
  - Anaemia [Unknown]
  - Fatigue [Unknown]
